FAERS Safety Report 5351913-8 (Version None)
Quarter: 2007Q2

REPORT INFORMATION
  Report Type: 
  Country: None (occurrence: None)
  Receive Date: 20070609
  Receipt Date: 20070531
  Transmission Date: 20071010
  Serious: Yes (Hospitalization)
  Sender: FDA-Public Use
  Company Number: FR-ABBOTT-07P-056-0370132-00

PATIENT
  Age: 14 Year
  Sex: Female

DRUGS (3)
  1. DEPAKENE [Suspect]
     Indication: EPILEPSY
     Route: 048
     Dates: end: 20070314
  2. TOPIRAMATE [Concomitant]
     Indication: EPILEPSY
     Route: 048
     Dates: start: 20060201
  3. CLOBAZAM [Concomitant]
     Indication: DRUG USE FOR UNKNOWN INDICATION
     Route: 048
     Dates: start: 20050601

REACTIONS (7)
  - DRUG LEVEL INCREASED [None]
  - FALL [None]
  - HYPERAMMONAEMIA [None]
  - INFLAMMATION [None]
  - PAIN IN EXTREMITY [None]
  - SKIN LESION [None]
  - THROMBOCYTOPENIA [None]
